FAERS Safety Report 14267996 (Version 2)
Quarter: 2018Q1

REPORT INFORMATION
  Report Type: Spontaneous
  Country: JP (occurrence: JP)
  Receive Date: 20171211
  Receipt Date: 20180207
  Transmission Date: 20180508
  Serious: Yes (Other)
  Sender: FDA-Public Use
  Company Number: JP-ROCHE-2036951

PATIENT
  Age: 67 Year
  Sex: Female

DRUGS (3)
  1. ACTEMRA [Suspect]
     Active Substance: TOCILIZUMAB
     Indication: STILL^S DISEASE
     Dosage: DOSAGE IS UNCERTAIN.
     Route: 065
  2. METHOTREXATE. [Concomitant]
     Active Substance: METHOTREXATE
     Dosage: DOSAGE IS UNCERTAIN.
     Route: 065
  3. PREDNISOLONE. [Concomitant]
     Active Substance: PREDNISOLONE
     Dosage: DOSAGE IS UNCERTAIN.
     Route: 048

REACTIONS (4)
  - Histiocytosis haematophagic [Recovered/Resolved]
  - Rash [Recovered/Resolved]
  - Abdominal discomfort [Unknown]
  - Off label use [Unknown]

NARRATIVE: CASE EVENT DATE: 201701
